FAERS Safety Report 11494829 (Version 3)
Quarter: 2016Q1

REPORT INFORMATION
  Report Type: Spontaneous
  Country: US (occurrence: US)
  Receive Date: 20150911
  Receipt Date: 20160218
  Transmission Date: 20160525
  Serious: Yes (Life-Threatening, Hospitalization, Other)
  Sender: FDA-Public Use
  Company Number: US-WATSON-2015-19234

PATIENT
  Age: 61 Year
  Sex: Male

DRUGS (3)
  1. VALSARTAN (WATSON LABORATORIES) [Suspect]
     Active Substance: VALSARTAN
     Indication: HYPERTENSION
     Dosage: 375 MG, SINGLE
     Route: 065
  2. AMLODIPINE BESYLATE (WATSON LABORATORIES) [Suspect]
     Active Substance: AMLODIPINE BESYLATE
     Indication: HYPERTENSION
     Dosage: 200 MG, SINGLE
     Route: 065
  3. ATENOLOL (WATSON LABORATORIES) [Suspect]
     Active Substance: ATENOLOL
     Indication: HYPERTENSION
     Dosage: 500 MG, SINGLE
     Route: 065

REACTIONS (6)
  - Acute kidney injury [Recovered/Resolved]
  - Lactic acidosis [Recovered/Resolved]
  - Suicide attempt [Recovered/Resolved]
  - Intentional overdose [Recovered/Resolved]
  - Cardiogenic shock [Recovered/Resolved]
  - Pulmonary oedema [Recovered/Resolved]
